FAERS Safety Report 7960144 (Version 3)
Quarter: 2012Q4

REPORT INFORMATION
  Report Type: 
  Country: CN (occurrence: CN)
  Receive Date: 20110525
  Receipt Date: 20121119
  Transmission Date: 20130627
  Serious: Yes (Other)
  Sender: FDA-Public Use
  Company Number: CN-ASTRAZENECA-2011SE30009

PATIENT
  Age: 63 Year
  Sex: Male
  Weight: 70 kg

DRUGS (11)
  1. PLENDIL [Suspect]
     Indication: CEREBRAL INFARCTION
     Route: 048
     Dates: start: 2003
  2. PLENDIL [Suspect]
     Indication: HYPERTENSION
     Route: 048
     Dates: start: 2003
  3. PLENDIL [Suspect]
     Indication: CEREBRAL INFARCTION
     Route: 048
     Dates: start: 20121108
  4. PLENDIL [Suspect]
     Indication: HYPERTENSION
     Route: 048
     Dates: start: 20121108
  5. BETALOC [Suspect]
     Indication: CEREBRAL INFARCTION
     Route: 048
     Dates: start: 2003
  6. BETALOC [Suspect]
     Indication: HYPERTENSION
     Route: 048
     Dates: start: 2003
  7. VALSARTAN [Concomitant]
     Indication: HYPERTENSION
     Route: 048
     Dates: start: 2003
  8. GINGKO [Concomitant]
     Indication: CEREBRAL THROMBOSIS
     Dates: start: 2003
  9. ASPIRIN [Concomitant]
     Indication: CEREBRAL THROMBOSIS
     Route: 048
     Dates: start: 2003
  10. PERSANTIN [Concomitant]
     Indication: CEREBRAL THROMBOSIS
     Dates: start: 2003
  11. OTHER DRUGS [Concomitant]
     Indication: CEREBRAL THROMBOSIS
     Dates: start: 2003

REACTIONS (3)
  - Supraventricular extrasystoles [Recovering/Resolving]
  - Ventricular extrasystoles [Not Recovered/Not Resolved]
  - Intentional drug misuse [Unknown]
